FAERS Safety Report 9095050 (Version 1)
Quarter: 2013Q1

REPORT INFORMATION
  Report Type: Spontaneous
  Country: US (occurrence: None)
  Receive Date: 20130215
  Receipt Date: 20130215
  Transmission Date: 20140127
  Serious: No
  Sender: FDA-Public Use
  Company Number: None

PATIENT
  Sex: Female
  Weight: 104.33 kg

DRUGS (1)
  1. MAXIMUM STRENGTH ACNE TREATMENT [Suspect]
     Dosage: SIZE OF ACNE
     Dates: start: 20130115

REACTIONS (3)
  - Burning sensation [None]
  - Drug ineffective [None]
  - Product quality issue [None]
